FAERS Safety Report 14062389 (Version 1)
Quarter: 2017Q4

REPORT INFORMATION
  Report Type: Spontaneous
  Country: DE (occurrence: DE)
  Receive Date: 20171009
  Receipt Date: 20171009
  Transmission Date: 20180321
  Serious: Yes (Congenital Anomaly, Other)
  Sender: FDA-Public Use
  Company Number: DE-TEVA-811190GER

PATIENT
  Age: 0 Year
  Sex: Male
  Weight: 3.19 kg

DRUGS (7)
  1. VENLAFAXINE [Suspect]
     Active Substance: VENLAFAXINE HYDROCHLORIDE
     Indication: BORDERLINE PERSONALITY DISORDER
     Dosage: 150 (MG/D)/ INITIAL 112.5 MG/D, DOSAGE INCREASED TO 150 MG/D FROM GEST. WEEK 28
     Route: 064
     Dates: start: 20160608, end: 20170312
  2. AMPICILLIN [Concomitant]
     Active Substance: AMPICILLIN
     Indication: STREPTOCOCCUS TEST POSITIVE
     Route: 064
  3. FOLIO FORTE [Concomitant]
     Active Substance: FOLIC ACID\VITAMINS
     Indication: PROPHYLAXIS OF NEURAL TUBE DEFECT
     Dosage: .8 MILLIGRAM DAILY;
     Route: 064
  4. HUMINSULIN BASAL [Concomitant]
     Active Substance: INSULIN NOS
     Indication: GESTATIONAL DIABETES
     Dosage: 10 IU (INTERNATIONAL UNIT) DAILY;
     Route: 064
  5. IBUPROFEN. [Concomitant]
     Active Substance: IBUPROFEN
     Indication: HEADACHE
     Route: 064
     Dates: start: 20160928, end: 20160929
  6. HUMINSULIN NORMAL [Concomitant]
     Indication: GESTATIONAL DIABETES
     Dosage: 42 IU (INTERNATIONAL UNIT) DAILY;
     Route: 064
  7. VOMEX A [Concomitant]
     Active Substance: DIMENHYDRINATE
     Indication: NAUSEA
     Route: 064
     Dates: start: 20160928, end: 20160929

REACTIONS (3)
  - Drug withdrawal syndrome neonatal [Recovered/Resolved]
  - Congenital skin dimples [Not Recovered/Not Resolved]
  - Foetal exposure during pregnancy [Unknown]
